FAERS Safety Report 7345439-X (Version None)
Quarter: 2011Q1

REPORT INFORMATION
  Report Type: 
  Country: None (occurrence: None)
  Receive Date: 20110310
  Receipt Date: 20110303
  Transmission Date: 20110831
  Serious: Yes (Hospitalization)
  Sender: FDA-Public Use
  Company Number: US-US-EMD SERONO, INC.-7024278

PATIENT
  Sex: Male
  Weight: 73 kg

DRUGS (2)
  1. REBIF [Suspect]
     Indication: MULTIPLE SCLEROSIS
     Route: 058
     Dates: start: 20080812
  2. DEPAKOTE [Concomitant]
     Indication: CONVULSION

REACTIONS (2)
  - CENTRAL NERVOUS SYSTEM LESION [None]
  - NEPHROLITHIASIS [None]
